FAERS Safety Report 6535286-0 (Version None)
Quarter: 2010Q1

REPORT INFORMATION
  Report Type: 
  Country: None (occurrence: None)
  Receive Date: 20100113
  Receipt Date: 20100106
  Transmission Date: 20100710
  Serious: Yes (Hospitalization, Other)
  Sender: FDA-Public Use
  Company Number: US-ROCHE-677974

PATIENT
  Age: 80 Year
  Sex: Female
  Weight: 50 kg

DRUGS (4)
  1. BONIVA [Suspect]
     Indication: OSTEOPOROSIS
     Route: 048
     Dates: start: 20080901, end: 20090901
  2. BONIVA [Suspect]
     Dosage: RESTARTED
     Route: 048
  3. ZETIA [Concomitant]
  4. METOPROLOL [Concomitant]

REACTIONS (2)
  - FALL [None]
  - HIP FRACTURE [None]
